FAERS Safety Report 7367616-4 (Version None)
Quarter: 2011Q1

REPORT INFORMATION
  Report Type: 
  Country: None (occurrence: None)
  Receive Date: 20110322
  Receipt Date: 20110317
  Transmission Date: 20110831
  Serious: Yes (Other)
  Sender: FDA-Public Use
  Company Number: JP-PFIZER INC-2011059318

PATIENT
  Age: 8 Year
  Sex: Female

DRUGS (2)
  1. ZOLOFT [Suspect]
     Indication: DEPRESSION
     Dosage: 25 MG DAILY
  2. ZOLOFT [Suspect]
     Dosage: 50 MG DAILY

REACTIONS (1)
  - BIPOLAR I DISORDER [None]
